FAERS Safety Report 17966168 (Version 2)
Quarter: 2020Q3

REPORT INFORMATION
  Report Type: Report from Study
  Country: CA (occurrence: CA)
  Receive Date: 20200701
  Receipt Date: 20200729
  Transmission Date: 20201103
  Serious: Yes (Hospitalization)
  Sender: FDA-Public Use
  Company Number: CA-CELLTRION INC.-2020CA023556

PATIENT

DRUGS (2)
  1. TRUXIMA [Suspect]
     Active Substance: RITUXIMAB-ABBS
     Dosage: UNK
     Dates: start: 20200723
  2. TRUXIMA [Suspect]
     Active Substance: RITUXIMAB-ABBS
     Indication: RHEUMATOID ARTHRITIS
     Dosage: 1000 MG, Q2WEEKS
     Route: 042
     Dates: start: 20200608

REACTIONS (9)
  - Contusion [Unknown]
  - Circumstance or information capable of leading to medication error [Unknown]
  - Blood pressure fluctuation [Unknown]
  - Fear of injection [Unknown]
  - Product use issue [Unknown]
  - Hospitalisation [Unknown]
  - Poor venous access [Unknown]
  - Intentional dose omission [Unknown]
  - Unevaluable event [Unknown]

NARRATIVE: CASE EVENT DATE: 20200723
